FAERS Safety Report 7477521-0 (Version None)
Quarter: 2011Q2

REPORT INFORMATION
  Report Type: 
  Country: None (occurrence: None)
  Receive Date: 20110511
  Receipt Date: 20110511
  Transmission Date: 20111010
  Serious: Yes (Other)
  Sender: FDA-Public Use
  Company Number: None

PATIENT
  Age: 17 Year
  Sex: Female
  Weight: 48.5349 kg

DRUGS (2)
  1. ASTHMA MEDICATIONS [Concomitant]
  2. TUBERSOL [Suspect]
     Dosage: 0.1 ML SINGLE INJECTION ID
     Route: 023

REACTIONS (1)
  - CONVULSION [None]
